FAERS Safety Report 24750543 (Version 1)
Quarter: 2024Q4

REPORT INFORMATION
  Report Type: Spontaneous
  Country: US (occurrence: US)
  Receive Date: 20241218
  Receipt Date: 20241218
  Transmission Date: 20250115
  Serious: No
  Sender: AMGEN
  Company Number: US-AMGEN-USASP2024243079

PATIENT
  Sex: Male

DRUGS (13)
  1. RITUXIMAB [Suspect]
     Active Substance: RITUXIMAB
     Indication: Factor V inhibition
     Dosage: 375 MILLIGRAM/SQ. METER, QWK FOR FOUR WEEKS
     Route: 065
  2. PREDNISONE [Suspect]
     Active Substance: PREDNISONE
     Indication: Factor V inhibition
     Dosage: UNK
     Route: 065
  3. METHYLPREDNISOLONE [Concomitant]
     Active Substance: METHYLPREDNISOLONE
     Indication: Factor V inhibition
     Dosage: UNK
     Route: 065
  4. TRANEXAMIC ACID [Concomitant]
     Active Substance: TRANEXAMIC ACID
     Indication: Factor V inhibition
     Dosage: UNK
  5. CEFTRIAXONE [Concomitant]
     Active Substance: CEFTRIAXONE
     Indication: Urinary tract infection bacterial
     Dosage: UNK
  6. CEFTRIAXONE [Concomitant]
     Active Substance: CEFTRIAXONE
     Indication: Pseudomonas infection
  7. AZITHROMYCIN [Concomitant]
     Active Substance: AZITHROMYCIN
     Indication: Urinary tract infection bacterial
     Dosage: UNK
  8. AZITHROMYCIN [Concomitant]
     Active Substance: AZITHROMYCIN
     Indication: Pseudomonas infection
  9. AMPICILLIN [Concomitant]
     Active Substance: AMPICILLIN
     Indication: Urinary tract infection bacterial
     Dosage: UNK
  10. AMPICILLIN [Concomitant]
     Active Substance: AMPICILLIN
     Indication: Pseudomonas infection
  11. TOBRAMYCIN [Concomitant]
     Active Substance: TOBRAMYCIN\TOBRAMYCIN SULFATE
     Indication: Urinary tract infection bacterial
     Dosage: UNK
  12. TOBRAMYCIN [Concomitant]
     Active Substance: TOBRAMYCIN\TOBRAMYCIN SULFATE
     Indication: Pseudomonas infection
  13. Immunoglobulin [Concomitant]
     Dosage: 1 GRAM PER KILOGRAM
     Route: 040

REACTIONS (3)
  - Drug effective for unapproved indication [Unknown]
  - Off label use [Unknown]
  - Coagulation factor V level increased [Unknown]
